FAERS Safety Report 15056464 (Version 1)
Quarter: 2018Q2

REPORT INFORMATION
  Report Type: Spontaneous
  Country: US (occurrence: US)
  Receive Date: 20180623
  Receipt Date: 20180623
  Transmission Date: 20180711
  Serious: No
  Sender: FDA-Public Use
  Company Number: US-BIOGEN-2018BI00595219

PATIENT
  Sex: Female

DRUGS (1)
  1. TYSABRI [Suspect]
     Active Substance: NATALIZUMAB
     Indication: MULTIPLE SCLEROSIS
     Route: 042
     Dates: start: 20080403

REACTIONS (6)
  - Impaired self-care [Unknown]
  - Tooth loss [Unknown]
  - Tooth extraction [Unknown]
  - Ligament sprain [Unknown]
  - Fall [Recovered/Resolved]
  - Mobility decreased [Unknown]
